FAERS Safety Report 4964786-X (Version None)
Quarter: 2006Q2

REPORT INFORMATION
  Report Type: 
  Country: None (occurrence: None)
  Receive Date: 20060406
  Receipt Date: 20060124
  Transmission Date: 20061013
  Serious: Yes (Life-Threatening, Hospitalization)
  Sender: FDA-Public Use
  Company Number: US-ROCHE-433353

PATIENT
  Age: 42 Year
  Sex: Male
  Weight: 81 kg

DRUGS (10)
  1. PEG-INTERFERON ALFA 2A (RO 25-8310) [Suspect]
     Dosage: INDICATION: SHOULDER PAIN, FEVER/ACHES.
     Route: 058
     Dates: start: 20050922, end: 20051216
  2. RIBAVIRIN [Suspect]
     Route: 048
     Dates: start: 20050922, end: 20051217
  3. CODEINE/GUAIFENESIN [Concomitant]
     Indication: BRONCHITIS
     Dosage: CODEINE/GUAIFENESIN 100/10 MG.
     Dates: start: 20051211
  4. SUDAFED 12 HOUR [Concomitant]
     Indication: BRONCHITIS
     Dates: start: 20051211
  5. DOXYCYCLINE [Concomitant]
     Indication: BRONCHITIS
     Dates: start: 20051211
  6. IBUPROFEN [Concomitant]
     Indication: SHOULDER PAIN
     Dosage: INDICATION: SHOULDER PAIN, FEVER/ACHES.
     Dates: start: 20041115
  7. NASAREL [Concomitant]
     Indication: SNORING
     Route: 055
     Dates: start: 20050404
  8. NICOTINE [Concomitant]
     Dates: start: 20051113
  9. PROZAC [Concomitant]
     Indication: DEPRESSION
     Dates: start: 20051027
  10. TRAZODONE HCL [Concomitant]
     Indication: INSOMNIA
     Dates: start: 20051027

REACTIONS (18)
  - ACUTE RESPIRATORY DISTRESS SYNDROME [None]
  - APLASTIC ANAEMIA [None]
  - BONE MARROW FAILURE [None]
  - BRONCHITIS [None]
  - CLOSTRIDIUM COLITIS [None]
  - CYTOMEGALOVIRUS ANTIBODY POSITIVE [None]
  - HEADACHE [None]
  - HEPATIC ISCHAEMIA [None]
  - HERPES SIMPLEX [None]
  - HYPOTENSION [None]
  - INFLUENZA [None]
  - ORAL CANDIDIASIS [None]
  - PLEURAL EFFUSION [None]
  - PNEUMOCYSTIS JIROVECI PNEUMONIA [None]
  - RASH MACULO-PAPULAR [None]
  - SEPSIS [None]
  - SPLENOMEGALY [None]
  - URINARY TRACT INFECTION [None]
